FAERS Safety Report 16547291 (Version 1)
Quarter: 2019Q3

REPORT INFORMATION
  Report Type: Spontaneous
  Country: GB (occurrence: GB)
  Receive Date: 20190709
  Receipt Date: 20190709
  Transmission Date: 20191004
  Serious: Yes (Hospitalization)
  Sender: FDA-Public Use
  Company Number: GB-MYLANLABS-2019M1062703

PATIENT
  Age: 81 Year
  Sex: Male

DRUGS (4)
  1. BISOPROLOL MYLAN [Suspect]
     Active Substance: BISOPROLOL
     Dosage: 80 MILLIGRAM
  2. DOXAZOSIN [Suspect]
     Active Substance: DOXAZOSIN MESYLATE
     Indication: PRODUCT USED FOR UNKNOWN INDICATION
     Dosage: 2 MILLIGRAM, QD
     Dates: start: 20180830
  3. BISOPROLOL MYLAN [Suspect]
     Active Substance: BISOPROLOL
     Indication: PRODUCT USED FOR UNKNOWN INDICATION
     Dosage: 2.5 MILLIGRAM, QD
     Dates: start: 20180830
  4. DOXAZOSIN [Suspect]
     Active Substance: DOXAZOSIN MESYLATE
     Dosage: 64 MILLIGRAM

REACTIONS (9)
  - Dyspnoea [Unknown]
  - Incorrect dose administered [Unknown]
  - Documented hypersensitivity to administered product [Unknown]
  - Loss of consciousness [Unknown]
  - Bradycardia [Unknown]
  - Renal failure [Unknown]
  - Product dispensing error [Unknown]
  - Circulatory collapse [Unknown]
  - Hyperkalaemia [Unknown]

NARRATIVE: CASE EVENT DATE: 20181001
